FAERS Safety Report 9897972 (Version 1)
Quarter: 2014Q1

REPORT INFORMATION
  Report Type: Spontaneous
  Country: CN (occurrence: CN)
  Receive Date: 20140214
  Receipt Date: 20140214
  Transmission Date: 20141002
  Serious: Yes (Other)
  Sender: FDA-Public Use
  Company Number: CN-ABBVIE-14P-035-1201871-00

PATIENT
  Age: 8 Year
  Sex: Female

DRUGS (2)
  1. DEPAKINE CHRONO [Suspect]
     Indication: EPILEPSY
     Dosage: TIME TO ONSET: FEW MONTHS
     Route: 048
     Dates: start: 201306
  2. MULTIVITAMINS [Concomitant]
     Indication: PRODUCT USED FOR UNKNOWN INDICATION
     Dates: start: 201306, end: 201310

REACTIONS (5)
  - Trismus [Recovered/Resolved]
  - Foaming at mouth [Recovered/Resolved]
  - Convulsion [Recovered/Resolved]
  - Eye disorder [Recovered/Resolved]
  - Epilepsy [Recovered/Resolved]
